FAERS Safety Report 4333108-X (Version None)
Quarter: 2004Q2

REPORT INFORMATION
  Report Type: 
  Country: None (occurrence: None)
  Receive Date: 20040402
  Receipt Date: 20040326
  Transmission Date: 20050107
  Serious: Yes (Hospitalization, Other)
  Sender: FDA-Public Use
  Company Number: FRWYE667526MAR04

PATIENT
  Sex: Male

DRUGS (2)
  1. OXAZEPAM [Suspect]
     Indication: DEPRESSION
     Dosage: 25 MG 1X PER 1 DAY ORAL
     Route: 048
  2. ANAFRANIL [Suspect]
     Indication: DEPRESSION
     Dosage: 75 MG 1X PER 1 DAY ORAL
     Route: 048

REACTIONS (4)
  - DRUG EXPOSURE DURING PREGNANCY [None]
  - HYPOTONIA NEONATAL [None]
  - POOR SUCKING REFLEX [None]
  - SOMNOLENCE NEONATAL [None]
